FAERS Safety Report 17688759 (Version 6)
Quarter: 2020Q4

REPORT INFORMATION
  Report Type: Report from Study
  Country: CA (occurrence: CA)
  Receive Date: 20200421
  Receipt Date: 20201012
  Transmission Date: 20210113
  Serious: Yes (Hospitalization, Other)
  Sender: FDA-Public Use
  Company Number: CA-BRISTOL-MYERS SQUIBB COMPANY-BMS-2018-069975

PATIENT
  Age: 70 Year
  Sex: Female

DRUGS (6)
  1. ABATACEPT [Suspect]
     Active Substance: ABATACEPT
     Indication: RHEUMATOID ARTHRITIS
     Dosage: 750 MILLIGRAM, Q4WK
     Route: 042
     Dates: start: 20171215
  2. OLMESARTAN [Concomitant]
     Active Substance: OLMESARTAN
     Indication: PRODUCT USED FOR UNKNOWN INDICATION
     Dosage: UNK
     Route: 065
  3. PANTOPRAZOLE [Concomitant]
     Active Substance: PANTOPRAZOLE
     Indication: PRODUCT USED FOR UNKNOWN INDICATION
     Dosage: UNK
     Route: 065
  4. VITAMIN D [ERGOCALCIFEROL] [Concomitant]
     Active Substance: ERGOCALCIFEROL
     Indication: PRODUCT USED FOR UNKNOWN INDICATION
     Dosage: UNK
     Route: 065
  5. PREGABALIN. [Concomitant]
     Active Substance: PREGABALIN
     Indication: PRODUCT USED FOR UNKNOWN INDICATION
     Dosage: UNK
     Route: 065
  6. AMLODIPINE [Concomitant]
     Active Substance: AMLODIPINE BESYLATE
     Indication: PRODUCT USED FOR UNKNOWN INDICATION
     Dosage: UNK
     Route: 065

REACTIONS (29)
  - Ecchymosis [Unknown]
  - Cough [Unknown]
  - Groin pain [Not Recovered/Not Resolved]
  - Macular hole [Unknown]
  - Nasopharyngitis [Unknown]
  - Productive cough [Unknown]
  - Pain in extremity [Recovering/Resolving]
  - Rheumatoid arthritis [Unknown]
  - Oral fungal infection [Not Recovered/Not Resolved]
  - Eye inflammation [Unknown]
  - Malaise [Unknown]
  - Back pain [Recovered/Resolved]
  - Heart rate increased [Not Recovered/Not Resolved]
  - Gingival ulceration [Unknown]
  - Oedema peripheral [Recovering/Resolving]
  - Oropharyngeal pain [Unknown]
  - Fatigue [Unknown]
  - Headache [Recovered/Resolved]
  - Anxiety [Unknown]
  - Joint swelling [Unknown]
  - Onychomycosis [Unknown]
  - Oral herpes [Recovering/Resolving]
  - Hypertension [Not Recovered/Not Resolved]
  - Dyspnoea exertional [Unknown]
  - Thyroid mass [Not Recovered/Not Resolved]
  - Bronchitis chronic [Unknown]
  - Respiratory tract infection viral [Unknown]
  - Arthralgia [Not Recovered/Not Resolved]
  - Emphysema [Unknown]

NARRATIVE: CASE EVENT DATE: 20180723
